FAERS Safety Report 21634457 (Version 4)
Quarter: 2022Q4

REPORT INFORMATION
  Report Type: Report from Study
  Country: MX (occurrence: MX)
  Receive Date: 20221123
  Receipt Date: 20221205
  Transmission Date: 20230112
  Serious: Yes (Other)
  Sender: FDA-Public Use
  Company Number: MX-BRISTOL-MYERS SQUIBB COMPANY-2022-140406

PATIENT
  Age: 41 Year
  Sex: Female
  Weight: 62 kg

DRUGS (10)
  1. LORATADINE [Concomitant]
     Active Substance: LORATADINE
     Indication: Product used for unknown indication
     Route: 048
     Dates: start: 20221007, end: 20221014
  2. FERROUS SULFATE [Concomitant]
     Active Substance: FERROUS SULFATE
     Indication: Product used for unknown indication
     Dosage: ONGOING
     Route: 048
     Dates: start: 20220429
  3. METHOTREXATE [Concomitant]
     Active Substance: METHOTREXATE
     Indication: Rheumatoid arthritis
     Dosage: ONE TIME PER WEEK ONGOING
     Route: 058
     Dates: start: 20220313
  4. METHOTREXATE [Concomitant]
     Active Substance: METHOTREXATE
     Dosage: ONE TIME PER WEEK, ONGOING
     Route: 058
     Dates: start: 20220509
  5. FOLIC ACID [Concomitant]
     Active Substance: FOLIC ACID
     Indication: Product used for unknown indication
     Dosage: ONE TIME PER WEEK, ONGOING
     Route: 048
     Dates: start: 20220313
  6. DICLOFENAC [Concomitant]
     Active Substance: DICLOFENAC
     Indication: Product used for unknown indication
     Dosage: AS NEEDED, ONGOING
     Route: 048
     Dates: start: 20220509
  7. ACETAMINOPHEN [Concomitant]
     Active Substance: ACETAMINOPHEN
     Indication: Product used for unknown indication
     Dosage: AS NEEDED, ONGOING
     Route: 048
     Dates: start: 20220509
  8. OMEPRAZOLE [Concomitant]
     Active Substance: OMEPRAZOLE
     Indication: Prophylaxis
     Dosage: AS NEEDED, ONGOING
     Route: 048
     Dates: start: 20220509
  9. KEKETOCONAZOLE/CLINDAMYCIN [Concomitant]
     Indication: Product used for unknown indication
     Dosage: 1 DF= 1.0 UNITS NOS, EVERY 24 HOURS, ONGOING
     Route: 067
     Dates: start: 20220906
  10. IBUPROFEN [Concomitant]
     Active Substance: IBUPROFEN
     Indication: Product used for unknown indication
     Dosage: ONGOING
     Route: 048
     Dates: start: 20221007

REACTIONS (1)
  - Neuroendocrine tumour [Not Recovered/Not Resolved]

NARRATIVE: CASE EVENT DATE: 20221026
